FAERS Safety Report 14678952 (Version 2)
Quarter: 2018Q2

REPORT INFORMATION
  Report Type: Report from Study
  Country: CA (occurrence: CA)
  Receive Date: 20180326
  Receipt Date: 20180613
  Transmission Date: 20180711
  Serious: Yes (Hospitalization, Other)
  Sender: FDA-Public Use
  Company Number: PHHY2018CA050080

PATIENT
  Age: 37 Year
  Sex: Female

DRUGS (3)
  1. LEPONEX [Suspect]
     Active Substance: CLOZAPINE
     Indication: SCHIZOPHRENIA
     Dosage: 300 MG, QD (FOR 119 DAYS)
     Route: 048
  2. LEPONEX [Suspect]
     Active Substance: CLOZAPINE
     Dosage: FOR 24 DAYS
     Route: 048
  3. OLANZAPINE. [Suspect]
     Active Substance: OLANZAPINE
     Indication: PRODUCT USED FOR UNKNOWN INDICATION
     Route: 065

REACTIONS (16)
  - Carbon dioxide decreased [Not Recovered/Not Resolved]
  - Alanine aminotransferase increased [Not Recovered/Not Resolved]
  - Myocarditis [Recovered/Resolved]
  - Globulin abnormal [Not Recovered/Not Resolved]
  - Dizziness [Recovered/Resolved]
  - Blood alkaline phosphatase increased [Not Recovered/Not Resolved]
  - Blood sodium decreased [Not Recovered/Not Resolved]
  - Heart rate increased [Not Recovered/Not Resolved]
  - Blood albumin decreased [Not Recovered/Not Resolved]
  - Blood chloride increased [Not Recovered/Not Resolved]
  - Red blood cell sedimentation rate increased [Not Recovered/Not Resolved]
  - Serum ferritin increased [Not Recovered/Not Resolved]
  - Anaemia [Recovered/Resolved]
  - Acute kidney injury [Recovered/Resolved]
  - Pain in extremity [Not Recovered/Not Resolved]
  - Platelet count increased [Not Recovered/Not Resolved]
